FAERS Safety Report 17703365 (Version 3)
Quarter: 2020Q2

REPORT INFORMATION
  Report Type: Spontaneous
  Country: FR (occurrence: FR)
  Receive Date: 20200424
  Receipt Date: 20200516
  Transmission Date: 20200714
  Serious: Yes (Life-Threatening, Other)
  Sender: FDA-Public Use
  Company Number: FR-AUROBINDO-AUR-APL-2020-019744

PATIENT
  Age: 71 Year
  Sex: Female
  Weight: 63 kg

DRUGS (20)
  1. DEXAMETHASONE. [Concomitant]
     Active Substance: DEXAMETHASONE
     Indication: CORONAVIRUS INFECTION
     Dosage: 20 MILLIGRAM, ONCE A DAY
     Route: 042
     Dates: start: 20200401
  2. LASILIX [Concomitant]
     Active Substance: FUROSEMIDE
     Indication: FLUID RETENTION
     Dosage: 40 MILLIGRAM, ONCE A DAY
     Route: 051
     Dates: start: 20200328
  3. HYDROXYCHLOROQUINE SULFATE. [Suspect]
     Active Substance: HYDROXYCHLOROQUINE SULFATE
     Indication: CORONAVIRUS INFECTION
     Dosage: 800 MILLIGRAM, ONCE A DAY
     Route: 065
     Dates: start: 20200328, end: 20200328
  4. HYDROXYCHLOROQUINE SULFATE. [Suspect]
     Active Substance: HYDROXYCHLOROQUINE SULFATE
     Dosage: 400 MILLIGRAM, ONCE A DAY
     Route: 065
     Dates: start: 20200329, end: 20200406
  5. HYDROXYCHLOROQUINE SULFATE. [Suspect]
     Active Substance: HYDROXYCHLOROQUINE SULFATE
     Dosage: 400 MILLIGRAM, ONCE A DAY
     Route: 050
     Dates: start: 202003, end: 20200331
  6. TIENAM [Concomitant]
     Active Substance: CILASTATIN SODIUM\IMIPENEM
     Indication: PROPHYLAXIS
     Dosage: 1 GRAM, 3 TIMES A DAY
     Route: 042
     Dates: start: 20200413
  7. LOVENOX [Suspect]
     Active Substance: ENOXAPARIN SODIUM
     Indication: DEEP VEIN THROMBOSIS
     Dosage: 0.7 MILLILITER, ONCE A DAY
     Route: 058
     Dates: start: 20200427
  8. HYDROXYCHLOROQUINE SULFATE. [Suspect]
     Active Substance: HYDROXYCHLOROQUINE SULFATE
     Dosage: 400 MILLIGRAM, ONCE A DAY
     Route: 050
     Dates: start: 20200401
  9. LANTUS [Concomitant]
     Active Substance: INSULIN GLARGINE
     Indication: DIABETES MELLITUS
     Dosage: 20 INTERNATIONAL UNIT, ONCE A DAY
     Route: 058
     Dates: start: 20200328
  10. PANTOPRAZOLE [Concomitant]
     Active Substance: PANTOPRAZOLE
     Indication: GASTROINTESTINAL DISORDER
     Dosage: 40 MILLIGRAM, ONCE A DAY
     Route: 048
     Dates: start: 20200326
  11. HYDROXYCHLOROQUINE SULFATE. [Suspect]
     Active Substance: HYDROXYCHLOROQUINE SULFATE
     Dosage: 600 MILLIGRAM, ONCE A DAY
     Route: 050
     Dates: start: 20200328, end: 20200329
  12. HYDROXYCHLOROQUINE SULFATE. [Suspect]
     Active Substance: HYDROXYCHLOROQUINE SULFATE
     Dosage: 400 MILLIGRAM, ONCE A DAY
     Route: 050
     Dates: start: 20200330, end: 20200406
  13. MOVICOL [Concomitant]
     Active Substance: POLYETHYLENE GLYCOL 3350\POTASSIUM CHLORIDE\SODIUM BICARBONATE\SODIUM CHLORIDE
     Indication: CONSTIPATION
  14. PANTOPRAZOLE [Concomitant]
     Active Substance: PANTOPRAZOLE
     Indication: GASTRITIS
  15. HYDROXYCHLOROQUINE SULFATE. [Suspect]
     Active Substance: HYDROXYCHLOROQUINE SULFATE
     Dosage: 1200 MILLIGRAM, ONCE A DAY
     Route: 050
     Dates: start: 20200328, end: 20200329
  16. HYDROXYCHLOROQUINE SULFATE. [Suspect]
     Active Substance: HYDROXYCHLOROQUINE SULFATE
     Dosage: 1000 MILLIGRAM, ONCE A DAY
     Route: 050
     Dates: start: 20200329, end: 20200329
  17. MOVICOL [Concomitant]
     Active Substance: POLYETHYLENE GLYCOL 3350\POTASSIUM CHLORIDE\SODIUM BICARBONATE\SODIUM CHLORIDE
     Indication: LAXATIVE SUPPORTIVE CARE
     Dosage: 2 DOSAGE FORM, ONCE A DAY
     Route: 050
     Dates: start: 20200328
  18. PARACETAMOL [Suspect]
     Active Substance: ACETAMINOPHEN
     Indication: PYREXIA
     Dosage: 4 GRAM, ONCE A DAY
     Route: 050
     Dates: start: 20200328
  19. PARACETAMOL [Suspect]
     Active Substance: ACETAMINOPHEN
     Indication: PAIN
  20. LOVENOX [Suspect]
     Active Substance: ENOXAPARIN SODIUM
     Indication: THROMBOSIS PROPHYLAXIS
     Dosage: 0.6 MILLILITER, ONCE A DAY
     Route: 058
     Dates: start: 20200326, end: 202003

REACTIONS (14)
  - Drug level increased [Recovered/Resolved]
  - Staphylococcal infection [Recovered/Resolved]
  - Enterococcal infection [Recovered/Resolved]
  - Hyperglycaemia [Recovered/Resolved]
  - Oxygen saturation decreased [Recovered/Resolved]
  - Vascular device infection [Not Recovered/Not Resolved]
  - Haematuria [Recovered/Resolved]
  - Deep vein thrombosis [Not Recovered/Not Resolved]
  - Hypoxia [Recovered/Resolved]
  - Haemoglobin decreased [Not Recovered/Not Resolved]
  - Alkalosis [Not Recovered/Not Resolved]
  - Overdose [Recovered/Resolved]
  - Quadriparesis [Recovering/Resolving]
  - Atrial flutter [Not Recovered/Not Resolved]

NARRATIVE: CASE EVENT DATE: 20200329
